FAERS Safety Report 19917579 (Version 2)
Quarter: 2021Q4

REPORT INFORMATION
  Report Type: Spontaneous
  Country: CZ (occurrence: CZ)
  Receive Date: 20211005
  Receipt Date: 20211022
  Transmission Date: 20220303
  Serious: Yes (Hospitalization)
  Sender: FDA-Public Use
  Company Number: CZ-BIOGEN-2021BI01052535

PATIENT
  Age: 3 Year
  Sex: Male

DRUGS (2)
  1. SPINRAZA [Suspect]
     Active Substance: NUSINERSEN
     Indication: Spinal muscular atrophy
     Route: 037
  2. SPINRAZA [Suspect]
     Active Substance: NUSINERSEN
     Route: 037
     Dates: start: 20190321, end: 20210917

REACTIONS (4)
  - Urinary retention [Recovered/Resolved]
  - Spinal cord haemorrhage [Recovered/Resolved]
  - Scoliosis [Unknown]
  - Post procedural haematoma [Not Recovered/Not Resolved]

NARRATIVE: CASE EVENT DATE: 20210919
